FAERS Safety Report 8168738-0 (Version None)
Quarter: 2012Q1

REPORT INFORMATION
  Report Type: 
  Country: None (occurrence: None)
  Receive Date: 20120222
  Receipt Date: 20120207
  Transmission Date: 20120608
  Serious: Yes (Other)
  Sender: FDA-Public Use
  Company Number: LEVE20120005

PATIENT
  Age: 14 Year

DRUGS (3)
  1. LEVETIRACETAM [Suspect]
     Indication: EPILEPSY
     Dosage: 2000 MG
  2. VALPROIC ACID [Concomitant]
  3. ETHOSUXIMIDE (ETHOSUXIMIDE) (ETHOSUXIMIDE) [Concomitant]

REACTIONS (2)
  - CONDITION AGGRAVATED [None]
  - PETIT MAL EPILEPSY [None]
